FAERS Safety Report 7409839-1 (Version None)
Quarter: 2011Q2

REPORT INFORMATION
  Report Type: 
  Country: None (occurrence: None)
  Receive Date: 20110412
  Receipt Date: 20110401
  Transmission Date: 20111010
  Serious: Yes (Death)
  Sender: FDA-Public Use
  Company Number: JP-ELI_LILLY_AND_COMPANY-JP201103008209

PATIENT
  Age: 75 Year
  Sex: Male

DRUGS (3)
  1. FOLIC ACID [Concomitant]
     Dosage: UNK
     Dates: start: 20110301
  2. VITAMIN B-12 [Concomitant]
     Dosage: UNK
     Dates: start: 20110301
  3. ALIMTA [Suspect]
     Indication: NON-SMALL CELL LUNG CANCER
     Dosage: 750 MG, UNK
     Route: 042
     Dates: start: 20110315, end: 20110315

REACTIONS (3)
  - PLATELET COUNT DECREASED [None]
  - RED BLOOD CELL COUNT DECREASED [None]
  - WHITE BLOOD CELL COUNT DECREASED [None]
